FAERS Safety Report 25682245 (Version 3)
Quarter: 2025Q3

REPORT INFORMATION
  Report Type: Spontaneous
  Country: EU (occurrence: EU)
  Receive Date: 20250814
  Receipt Date: 20250926
  Transmission Date: 20251021
  Serious: No
  Sender: PFIZER
  Company Number: EU-PFIZER INC-202500154602

PATIENT
  Age: 36 Year
  Sex: Male

DRUGS (2)
  1. GENOTROPIN [Suspect]
     Active Substance: SOMATROPIN
  2. GENOTROPIN [Suspect]
     Active Substance: SOMATROPIN

REACTIONS (5)
  - Product preparation issue [Unknown]
  - Product preparation error [Unknown]
  - Device delivery system issue [Unknown]
  - Device leakage [Unknown]
  - Product use complaint [Unknown]
